FAERS Safety Report 18398784 (Version 2)
Quarter: 2020Q4

REPORT INFORMATION
  Report Type: Spontaneous
  Country: US (occurrence: US)
  Receive Date: 20201019
  Receipt Date: 20201023
  Transmission Date: 20210114
  Serious: Yes (Hospitalization, Other)
  Sender: FDA-Public Use
  Company Number: US-GLAXOSMITHKLINE-US2020AMR203643

PATIENT
  Sex: Male

DRUGS (1)
  1. ANORO ELLIPTA [Suspect]
     Active Substance: UMECLIDINIUM BROMIDE\VILANTEROL TRIFENATATE
     Indication: CHRONIC OBSTRUCTIVE PULMONARY DISEASE
     Dosage: UNK UNK, QD
     Route: 065
     Dates: start: 20190922

REACTIONS (7)
  - Catheter placement [Unknown]
  - Back pain [Unknown]
  - Angina pectoris [Unknown]
  - Arthropathy [Unknown]
  - Choking sensation [Unknown]
  - Back injury [Unknown]
  - Dyspnoea [Unknown]
